FAERS Safety Report 22368438 (Version 3)
Quarter: 2023Q2

REPORT INFORMATION
  Report Type: Report from Study
  Country: FR (occurrence: FR)
  Receive Date: 20230525
  Receipt Date: 20230628
  Transmission Date: 20230721
  Serious: Yes (Other)
  Sender: FDA-Public Use
  Company Number: FR-TAKEDA-2023TUS050337

PATIENT
  Age: 61 Year
  Sex: Male
  Weight: 59 kg

DRUGS (1)
  1. MARIBAVIR [Suspect]
     Active Substance: MARIBAVIR
     Indication: Cytomegalovirus infection
     Dosage: 400 MILLIGRAM, BID
     Route: 048
     Dates: start: 20230330, end: 20230613

REACTIONS (5)
  - Acute kidney injury [Unknown]
  - Cytomegalovirus infection [Unknown]
  - Pyelonephritis [Unknown]
  - Drug resistance [Unknown]
  - Off label use [Unknown]

NARRATIVE: CASE EVENT DATE: 20230301
